FAERS Safety Report 7386229-1 (Version None)
Quarter: 2011Q1

REPORT INFORMATION
  Report Type: 
  Country: None (occurrence: None)
  Receive Date: 20110329
  Receipt Date: 20110329
  Transmission Date: 20110831
  Serious: Yes (Disabling)
  Sender: FDA-Public Use
  Company Number: None

PATIENT
  Age: 6 Year
  Sex: Male
  Weight: 19.9583 kg

DRUGS (1)
  1. SINGULAIR [Suspect]
     Indication: ASTHMA
     Dosage: 4 MY DAILY PO
     Route: 048
     Dates: start: 20060313, end: 20110221

REACTIONS (3)
  - EYE MOVEMENT DISORDER [None]
  - TIC [None]
  - NIGHTMARE [None]
